FAERS Safety Report 22212762 (Version 2)
Quarter: 2023Q2

REPORT INFORMATION
  Report Type: Spontaneous
  Country: DE (occurrence: DE)
  Receive Date: 20230414
  Receipt Date: 20230615
  Transmission Date: 20230722
  Serious: Yes (Life-Threatening, Hospitalization, Disabling, Other)
  Sender: FDA-Public Use
  Company Number: DE-002147023-NVSC2023DE085459

PATIENT
  Sex: Male
  Weight: 86 kg

DRUGS (13)
  1. COSENTYX [Suspect]
     Active Substance: SECUKINUMAB
     Indication: Psoriasis
     Dosage: 1 DOSAGE FORM, QMO
     Route: 065
     Dates: start: 2016
  2. COSENTYX [Suspect]
     Active Substance: SECUKINUMAB
     Dosage: 300 MG
     Route: 065
  3. ASPIRIN [Concomitant]
     Active Substance: ASPIRIN
     Indication: Product used for unknown indication
     Dosage: 1 DOSAGE FORM, QD (1-0-0)
     Route: 065
  4. REPATHA [Concomitant]
     Active Substance: EVOLOCUMAB
     Indication: Product used for unknown indication
     Dosage: UNK, Q2W (EVERY 14 DAYS)
     Route: 065
  5. REPATHA [Concomitant]
     Active Substance: EVOLOCUMAB
     Dosage: UNK
     Route: 065
     Dates: start: 20230221, end: 20230221
  6. REPATHA [Concomitant]
     Active Substance: EVOLOCUMAB
     Dosage: UNK
     Route: 065
     Dates: start: 20230307, end: 20230307
  7. LAXANS [Concomitant]
     Indication: Product used for unknown indication
     Dosage: UNK, PRN (1-0-1-0)
     Route: 065
  8. NOVALGIN [Concomitant]
     Indication: Product used for unknown indication
     Dosage: UNK, QID (2-2-2-2)
     Route: 065
  9. PANTOPRAZOLE [Concomitant]
     Active Substance: PANTOPRAZOLE
     Indication: Product used for unknown indication
     Dosage: 1 DOSAGE FORM, QD (0-0-1)
     Route: 065
  10. ZOLPIDEM [Concomitant]
     Active Substance: ZOLPIDEM TARTRATE
     Indication: Product used for unknown indication
     Dosage: 1 DOSAGE FORM, QD (0-0-0-1)
     Route: 065
  11. FRAGMIN [Concomitant]
     Active Substance: DALTEPARIN SODIUM
     Indication: Product used for unknown indication
     Dosage: 1 DOSAGE FORM, QD (0-0-1-0), (5000 I.E FORTE)
     Route: 058
  12. CHOLECALCIFEROL [Concomitant]
     Active Substance: CHOLECALCIFEROL
     Indication: Product used for unknown indication
     Dosage: 1 DOSAGE FORM, QD (1-0-0-0) (20, 000 I.E)
     Route: 065
  13. FLUTICASONE PROPIONATE\SALMETEROL XINAFOATE [Concomitant]
     Active Substance: FLUTICASONE PROPIONATE\SALMETEROL XINAFOATE
     Indication: Product used for unknown indication
     Dosage: UNK, PRN
     Route: 065

REACTIONS (34)
  - Diverticulitis [Unknown]
  - Myocardial infarction [Unknown]
  - Peritonitis [Unknown]
  - Nephrolithiasis [Unknown]
  - C-reactive protein increased [Unknown]
  - Hypoventilation [Unknown]
  - Asthma [Unknown]
  - Abdominal pain lower [Unknown]
  - Diverticulum intestinal [Unknown]
  - Obstructive sleep apnoea syndrome [Unknown]
  - White blood cell count increased [Unknown]
  - Wound infection [Unknown]
  - Wound dehiscence [Unknown]
  - Spinal osteoarthritis [Unknown]
  - PO2 decreased [Recovered/Resolved]
  - Haemoglobin decreased [Unknown]
  - Oxygen saturation decreased [Recovered/Resolved]
  - Haematocrit decreased [Recovering/Resolving]
  - Blood glucose increased [Recovered/Resolved]
  - Red blood cell count decreased [Recovering/Resolving]
  - Blood sodium decreased [Recovered/Resolved]
  - Blood calcium decreased [Unknown]
  - Blood phosphorus decreased [Unknown]
  - Protein total decreased [Recovering/Resolving]
  - Blood creatinine decreased [Unknown]
  - Gamma-glutamyltransferase increased [Unknown]
  - Blood cholinesterase decreased [Unknown]
  - Blood lactate dehydrogenase decreased [Unknown]
  - Lipase decreased [Not Recovered/Not Resolved]
  - Blood creatine phosphokinase increased [Not Recovered/Not Resolved]
  - Activated partial thromboplastin time prolonged [Recovered/Resolved]
  - Platelet count increased [Unknown]
  - Pseudomonas test positive [Not Recovered/Not Resolved]
  - Enterococcus test positive [Not Recovered/Not Resolved]

NARRATIVE: CASE EVENT DATE: 20210801
